FAERS Safety Report 8607135 (Version 3)
Quarter: 2014Q1

REPORT INFORMATION
  Report Type: Spontaneous
  Country: US (occurrence: US)
  Receive Date: 20120611
  Receipt Date: 20140108
  Transmission Date: 20141002
  Serious: Yes (Disabling)
  Sender: FDA-Public Use
  Company Number: US-ASTRAZENECA-2012SE35561

PATIENT
  Age: 58 Year
  Sex: Female

DRUGS (16)
  1. NEXIUM [Suspect]
     Indication: GASTROOESOPHAGEAL REFLUX DISEASE
     Dosage: ONCE DAILY
     Route: 048
  2. NEXIUM [Suspect]
     Indication: GASTROOESOPHAGEAL REFLUX DISEASE
     Dosage: ONCE DAILY
     Route: 048
  3. NEXIUM [Suspect]
     Indication: GASTROOESOPHAGEAL REFLUX DISEASE
     Dosage: TWICE DAILY
     Route: 048
     Dates: start: 2001
  4. NEXIUM [Suspect]
     Indication: GASTROOESOPHAGEAL REFLUX DISEASE
     Dosage: TWICE DAILY
     Route: 048
     Dates: start: 2001
  5. NEXIUM [Suspect]
     Indication: GASTROOESOPHAGEAL REFLUX DISEASE
     Route: 048
     Dates: start: 20130903
  6. NEXIUM [Suspect]
     Indication: GASTROOESOPHAGEAL REFLUX DISEASE
     Route: 048
     Dates: start: 20130903
  7. RANITIDINE [Concomitant]
     Route: 048
  8. BENEDRYL [Concomitant]
     Dosage: OTC
  9. ALKA-SELTZER [Concomitant]
     Dosage: OTC
  10. TREMEDOL [Concomitant]
  11. ZOLOFT [Concomitant]
  12. ENALAPRIL [Concomitant]
  13. METOPROLOL [Concomitant]
  14. VICODIN [Concomitant]
  15. NEUROXEN [Concomitant]
  16. METFORMIN [Concomitant]
     Indication: HYPERTENSION

REACTIONS (11)
  - Systemic lupus erythematosus [Unknown]
  - Back disorder [Unknown]
  - Cardiac disorder [Unknown]
  - Diabetes mellitus [Unknown]
  - Gastric dilatation [Unknown]
  - Osteoporosis [Unknown]
  - Arthritis [Unknown]
  - Multiple fractures [Unknown]
  - Oesophageal disorder [Unknown]
  - Depression [Unknown]
  - Abdominal discomfort [Unknown]
